FAERS Safety Report 9695418 (Version 1)
Quarter: 2013Q4

REPORT INFORMATION
  Report Type: Report from Study
  Country: US (occurrence: US)
  Receive Date: 20131119
  Receipt Date: 20131119
  Transmission Date: 20140711
  Serious: Yes (Hospitalization)
  Sender: FDA-Public Use
  Company Number: US-VERTEX PHARMACEUTICALS INC-2013-011134

PATIENT
  Age: 24 Year
  Sex: Female

DRUGS (1)
  1. VX-770 [Suspect]
     Indication: CYSTIC FIBROSIS
     Dosage: 150 MG, BID
     Dates: start: 20120806, end: 20130909

REACTIONS (3)
  - Gastrointestinal obstruction [Recovered/Resolved]
  - Haematemesis [Recovered/Resolved]
  - Intestinal operation [Recovered/Resolved]
